FAERS Safety Report 8199456-0 (Version None)
Quarter: 2012Q1

REPORT INFORMATION
  Report Type: 
  Country: None (occurrence: None)
  Receive Date: 20120309
  Receipt Date: 20120309
  Transmission Date: 20120608
  Serious: Yes (Other)
  Sender: FDA-Public Use
  Company Number: CN-PFIZER INC-2012057731

PATIENT
  Sex: Male

DRUGS (1)
  1. CELEBREX [Suspect]
     Indication: MUSCULOSKELETAL PAIN
     Dosage: 100 MG, 2X/DAY
     Route: 048
     Dates: start: 20120304, end: 20120304

REACTIONS (7)
  - SWELLING [None]
  - PRURITUS [None]
  - HYPOAESTHESIA [None]
  - SKIN EXFOLIATION [None]
  - ERYTHEMA [None]
  - SKIN MASS [None]
  - EYE SWELLING [None]
